FAERS Safety Report 7136730-0 (Version None)
Quarter: 2010Q4

REPORT INFORMATION
  Report Type: 
  Country: None (occurrence: None)
  Receive Date: 20101118
  Receipt Date: 20101103
  Transmission Date: 20110411
  Serious: Yes (Hospitalization, Other)
  Sender: FDA-Public Use
  Company Number: 2010003613

PATIENT
  Age: 69 Year
  Sex: Male

DRUGS (15)
  1. ERLOTINIB/PLACEBO (ERLOTINIB) (TABLET) ERLOTINIB) [Suspect]
     Indication: HEPATIC NEOPLASM MALIGNANT
     Dosage: 100 MG, QD, ORAL. 100 MG, QD, ORAL
     Route: 048
     Dates: start: 20100809, end: 20100823
  2. ERLOTINIB/PLACEBO (ERLOTINIB) (TABLET) ERLOTINIB) [Suspect]
     Indication: HEPATIC NEOPLASM MALIGNANT
     Dosage: 100 MG, QD, ORAL. 100 MG, QD, ORAL
     Route: 048
     Dates: start: 20100913, end: 20101104
  3. SORAFENIB [Suspect]
     Indication: HEPATIC NEOPLASM MALIGNANT
     Dosage: 400 MG, QD, ORAL, 400 MG, QD, ORAL
     Route: 048
     Dates: start: 20100809, end: 20100823
  4. SORAFENIB [Suspect]
     Indication: HEPATIC NEOPLASM MALIGNANT
     Dosage: 400 MG, QD, ORAL, 400 MG, QD, ORAL
     Route: 048
     Dates: start: 20100913, end: 20101104
  5. FUROSEMIDE [Concomitant]
  6. SPIRONOLACTONE [Concomitant]
  7. HADOLOL (DOMPERIDONE) [Concomitant]
  8. FORTISIP (FORTISIP) [Concomitant]
  9. COTRIM [Concomitant]
  10. METOCLOPRAKIOE [Concomitant]
  11. TRAMADOL HCL [Concomitant]
  12. ACETAMINOPHEN [Concomitant]
  13. MOXIFLOXACIN HCL [Concomitant]
  14. ETHAMBUTOL (ETHAMBUTOL) [Concomitant]
  15. PYRAZINAMIDE [Concomitant]

REACTIONS (6)
  - ASCITES [None]
  - DEHYDRATION [None]
  - HYPONATRAEMIA [None]
  - MYCOBACTERIUM TUBERCULOSIS COMPLEX TEST POSITIVE [None]
  - PERITONEAL TUBERCULOSIS [None]
  - RENAL IMPAIRMENT [None]
